FAERS Safety Report 9865192 (Version 1)
Quarter: 2014Q1

REPORT INFORMATION
  Report Type: Spontaneous
  Country: US (occurrence: US)
  Receive Date: 20140203
  Receipt Date: 20140203
  Transmission Date: 20141002
  Serious: No
  Sender: FDA-Public Use
  Company Number: US-ALLERGAN-1304712US

PATIENT
  Age: 54 Year
  Sex: Female

DRUGS (4)
  1. RESTASIS [Suspect]
     Indication: DRY EYE
     Dosage: 2 GTT, BID
     Route: 047
     Dates: start: 201302
  2. REFRESH P.M. [Suspect]
     Indication: DRY EYE
     Dosage: UNK UNK, QHS
     Route: 047
     Dates: start: 20130328
  3. THYROID MEDICATION NOS [Concomitant]
     Indication: HYPOTHYROIDISM
     Dosage: UNK
  4. REFRESH SENSITIVE PF NOS [Concomitant]
     Indication: DRY EYE
     Dosage: 2 GTT, PRN
     Route: 047
     Dates: start: 2010

REACTIONS (1)
  - Glassy eyes [Unknown]
